FAERS Safety Report 5139401-5 (Version None)
Quarter: 2006Q4

REPORT INFORMATION
  Report Type: 
  Country: None (occurrence: None)
  Receive Date: 20061030
  Receipt Date: 20051109
  Transmission Date: 20070319
  Serious: Yes (Disabling, Other)
  Sender: FDA-Public Use
  Company Number: US-GLAXOSMITHKLINE-A0581623A

PATIENT
  Age: 44 Year
  Sex: Male
  Weight: 72.7 kg

DRUGS (5)
  1. SEREVENT [Suspect]
     Indication: ASTHMA
     Dosage: 1PUFF TWICE PER DAY
     Route: 055
     Dates: start: 20010401, end: 20050801
  2. SINGULAIR [Concomitant]
  3. FLOVENT [Concomitant]
  4. BENADRYL [Concomitant]
  5. SUDAFED 12 HOUR [Concomitant]

REACTIONS (6)
  - BLOOD GLUCOSE DECREASED [None]
  - DIZZINESS [None]
  - FEELING JITTERY [None]
  - HEADACHE [None]
  - NERVOUSNESS [None]
  - PALPITATIONS [None]
